FAERS Safety Report 17632379 (Version 2)
Quarter: 2020Q2

REPORT INFORMATION
  Report Type: Spontaneous
  Country: US (occurrence: US)
  Receive Date: 20200406
  Receipt Date: 20200529
  Transmission Date: 20200713
  Serious: Yes (Death, Other)
  Sender: FDA-Public Use
  Company Number: US-ASTRAZENECA-2020SE45901

PATIENT
  Age: 21929 Day
  Sex: Male

DRUGS (5)
  1. BYETTA [Suspect]
     Active Substance: EXENATIDE
     Route: 065
     Dates: start: 20110603, end: 201405
  2. BYETTA [Suspect]
     Active Substance: EXENATIDE
     Dosage: 1 ML BID INFECT BELOW THE SKIN
     Route: 065
     Dates: start: 20140525
  3. VICTOZA [Suspect]
     Active Substance: LIRAGLUTIDE
     Dosage: 0.6 MG/0.1 ONCE DAILY
     Route: 065
     Dates: start: 20100719, end: 20110526
  4. BYETTA [Suspect]
     Active Substance: EXENATIDE
     Route: 065
     Dates: start: 20090107, end: 20100718
  5. BYETTA [Suspect]
     Active Substance: EXENATIDE
     Dosage: 10 MCG/0.04ML 0.02ML UP TO 1 HOUR BEFORE BREAKFAST AND EVENING MEAL
     Route: 065
     Dates: start: 20090921

REACTIONS (3)
  - Metastases to liver [Unknown]
  - Death [Fatal]
  - Pancreatic carcinoma [Unknown]

NARRATIVE: CASE EVENT DATE: 20140331
